FAERS Safety Report 11162470 (Version 1)
Quarter: 2015Q2

REPORT INFORMATION
  Report Type: Spontaneous
  Country: US (occurrence: None)
  Receive Date: 20150603
  Receipt Date: 20150603
  Transmission Date: 20150821
  Serious: No
  Sender: FDA-Public Use
  Company Number: None

PATIENT
  Sex: Female
  Weight: 105.69 kg

DRUGS (1)
  1. WELLBUTRIN [Suspect]
     Active Substance: BUPROPION HYDROCHLORIDE
     Indication: DYSTHYMIC DISORDER
     Route: 048
     Dates: start: 201008, end: 201504

REACTIONS (3)
  - Insomnia [None]
  - Nausea [None]
  - Agitation [None]
